FAERS Safety Report 25245432 (Version 1)
Quarter: 2025Q2

REPORT INFORMATION
  Report Type: Spontaneous
  Country: US (occurrence: None)
  Receive Date: 20250426
  Receipt Date: 20250426
  Transmission Date: 20250717
  Serious: Yes (Other)
  Sender: FDA-CTU
  Company Number: None

PATIENT
  Age: 26 Year
  Sex: Female
  Weight: 74.25 kg

DRUGS (2)
  1. NITROFURANTOIN MONOHYDRATE MACROCRYSTALS [Suspect]
     Active Substance: NITROFURANTOIN\NITROFURANTOIN MONOHYDRATE
     Indication: Urinary tract infection
     Dates: start: 20250417, end: 20250417
  2. NP THYROID [Concomitant]
     Active Substance: LEVOTHYROXINE\LIOTHYRONINE

REACTIONS (11)
  - Product administration error [None]
  - Prescription drug used without a prescription [None]
  - Palpitations [None]
  - Palpitations [None]
  - Chest pain [None]
  - Constipation [None]
  - Syncope [None]
  - Blindness transient [None]
  - Vision blurred [None]
  - Visual impairment [None]
  - Dyspnoea [None]

NARRATIVE: CASE EVENT DATE: 20250417
